FAERS Safety Report 16290840 (Version 4)
Quarter: 2021Q3

REPORT INFORMATION
  Report Type: Spontaneous
  Country: US (occurrence: US)
  Receive Date: 20190509
  Receipt Date: 20210906
  Transmission Date: 20211014
  Serious: Yes (Other)
  Sender: FDA-Public Use
  Company Number: US-PFIZER INC-2019195293

PATIENT
  Age: 77 Year
  Sex: Female

DRUGS (1)
  1. XELJANZ XR [Suspect]
     Active Substance: TOFACITINIB CITRATE
     Dosage: 11 MG, 1X/DAY

REACTIONS (6)
  - Rheumatoid arthritis [Unknown]
  - Oropharyngeal discomfort [Unknown]
  - Infection [Unknown]
  - Pain [Unknown]
  - Nasopharyngitis [Unknown]
  - Hypoacusis [Unknown]
